FAERS Safety Report 6409651-6 (Version None)
Quarter: 2009Q4

REPORT INFORMATION
  Report Type: 
  Country: None (occurrence: None)
  Receive Date: 20091021
  Receipt Date: 20091021
  Transmission Date: 20100525
  Serious: No
  Sender: FDA-Public Use
  Company Number: None

PATIENT

DRUGS (2)
  1. TAMIFLU [Suspect]
     Indication: ANTIVIRAL PROPHYLAXIS
     Dosage: DAILY OR BID PO
     Route: 048
  2. TAMIFLU [Suspect]
     Indication: H1N1 INFLUENZA
     Dosage: DAILY OR BID PO
     Route: 048

REACTIONS (1)
  - MEDICATION ERROR [None]
